FAERS Safety Report 14000217 (Version 1)
Quarter: 2017Q3

REPORT INFORMATION
  Report Type: Spontaneous
  Country: US (occurrence: None)
  Receive Date: 20170922
  Receipt Date: 20170922
  Transmission Date: 20171128
  Serious: No
  Sender: FDA-Public Use
  Company Number: None

PATIENT
  Age: 43 Year
  Sex: Female

DRUGS (1)
  1. HUMIRA [Suspect]
     Active Substance: ADALIMUMAB
     Indication: CROHN^S DISEASE
     Route: 058
     Dates: start: 20170601

REACTIONS (7)
  - Depression [None]
  - Headache [None]
  - Weight increased [None]
  - Abdominal pain [None]
  - Fatigue [None]
  - Mood altered [None]
  - Drug ineffective [None]

NARRATIVE: CASE EVENT DATE: 20170808
